FAERS Safety Report 6648358-7 (Version None)
Quarter: 2010Q1

REPORT INFORMATION
  Report Type: 
  Country: None (occurrence: None)
  Receive Date: 20100324
  Receipt Date: 20100310
  Transmission Date: 20100710
  Serious: Yes (Hospitalization, Other)
  Sender: FDA-Public Use
  Company Number: US-ELI_LILLY_AND_COMPANY-US201003004088

PATIENT
  Sex: Female

DRUGS (8)
  1. FORTEO [Suspect]
     Indication: OSTEOPOROSIS
     Dosage: 20 UG, DAILY (1/D)
     Dates: start: 20070904, end: 20080801
  2. FORTEO [Suspect]
     Dosage: 20 UG, DAILY (1/D)
     Dates: start: 20080901
  3. ASPIRIN [Concomitant]
  4. LEVOTHYROXINE SODIUM [Concomitant]
     Dosage: 75 UG, DAILY (1/D)
  5. LISINOPRIL [Concomitant]
     Dosage: 5 MG, DAILY (1/D)
  6. AMLODIPINE BESYLATE [Concomitant]
     Dosage: 2.5 MG, DAILY (1/D)
  7. SPIRIVA [Concomitant]
     Dosage: 50 UG, 2/D
  8. PROAIR HFA [Concomitant]
     Dosage: 90 UG, 2 PUFFS AS NEEDED

REACTIONS (7)
  - CHRONIC OBSTRUCTIVE PULMONARY DISEASE [None]
  - FALL [None]
  - FRACTURED SACRUM [None]
  - INTENTIONAL DRUG MISUSE [None]
  - MEDICATION ERROR [None]
  - PELVIC FRACTURE [None]
  - THROMBOSIS [None]
